FAERS Safety Report 4917958-4 (Version None)
Quarter: 2006Q1

REPORT INFORMATION
  Report Type: 
  Country: None (occurrence: None)
  Receive Date: 20060221
  Receipt Date: 20051006
  Transmission Date: 20060701
  Serious: Yes (Hospitalization)
  Sender: FDA-Public Use
  Company Number: US-MERCK-0510USA05859

PATIENT
  Age: 55 Year
  Sex: Male
  Weight: 120 kg

DRUGS (1)
  1. VIOXX [Suspect]
     Indication: ARTHRITIS
     Route: 048

REACTIONS (15)
  - ABDOMINAL DISTENSION [None]
  - CARDIAC FAILURE CONGESTIVE [None]
  - CARDIOMYOPATHY [None]
  - CONVULSION [None]
  - DEEP VEIN THROMBOSIS [None]
  - DYSPNOEA [None]
  - GENERALISED OEDEMA [None]
  - HYPERKALAEMIA [None]
  - MITRAL VALVE INCOMPETENCE [None]
  - MYOCARDIAL INFARCTION [None]
  - OEDEMA [None]
  - OEDEMA PERIPHERAL [None]
  - OESOPHAGITIS HAEMORRHAGIC [None]
  - RETROPERITONEAL HAEMATOMA [None]
  - TREATMENT NONCOMPLIANCE [None]
